FAERS Safety Report 23669304 (Version 1)
Quarter: 2024Q1

REPORT INFORMATION
  Report Type: Spontaneous
  Country: MX (occurrence: MX)
  Receive Date: 20240325
  Receipt Date: 20240325
  Transmission Date: 20240409
  Serious: Yes (Other)
  Sender: FDA-Public Use
  Company Number: MX-SA-SAC20240322000679

PATIENT
  Sex: Male

DRUGS (1)
  1. FABRAZYME [Suspect]
     Active Substance: AGALSIDASE BETA
     Indication: Fabry^s disease
     Dosage: UNK
     Route: 042
     Dates: start: 202403

REACTIONS (2)
  - Laryngeal oedema [Unknown]
  - Erythema [Unknown]

NARRATIVE: CASE EVENT DATE: 20240301
